FAERS Safety Report 6165136-6 (Version None)
Quarter: 2009Q2

REPORT INFORMATION
  Report Type: 
  Country: None (occurrence: None)
  Receive Date: 20090421
  Receipt Date: 20090407
  Transmission Date: 20091009
  Serious: Yes (Other)
  Sender: FDA-Public Use
  Company Number: 1000005113

PATIENT
  Age: 61 Year
  Sex: Male

DRUGS (3)
  1. ESCITALOPRAM [Suspect]
  2. NEXEN [Suspect]
  3. LOXAPINE [Suspect]
     Dosage: ORAL
     Route: 048

REACTIONS (4)
  - MALAISE [None]
  - OEDEMA [None]
  - RESPIRATORY DISTRESS [None]
  - WRONG DRUG ADMINISTERED [None]
